FAERS Safety Report 19868877 (Version 1)
Quarter: 2021Q3

REPORT INFORMATION
  Report Type: Spontaneous
  Country: FR (occurrence: FR)
  Receive Date: 20210922
  Receipt Date: 20210922
  Transmission Date: 20211014
  Serious: Yes (Hospitalization)
  Sender: FDA-Public Use
  Company Number: FR-PFIZER INC-202101192999

PATIENT
  Sex: Female
  Weight: 55 kg

DRUGS (4)
  1. CANNABIS [Suspect]
     Active Substance: CANNABIS SATIVA SUBSP. INDICA TOP
     Dosage: UNK
     Route: 055
     Dates: start: 2020, end: 20210620
  2. ECSTASY [Suspect]
     Active Substance: MIDOMAFETAMINE
     Dosage: 1 G
     Dates: start: 202104, end: 20210620
  3. COCAINE [Suspect]
     Active Substance: COCAINE
     Dosage: 0.5 G
     Route: 045
     Dates: start: 202104, end: 20210620
  4. LYRICA [Suspect]
     Active Substance: PREGABALIN
     Dosage: UNK
     Route: 048
     Dates: start: 202104, end: 20210620

REACTIONS (2)
  - Withdrawal syndrome [Recovered/Resolved]
  - Drug abuse [Not Recovered/Not Resolved]

NARRATIVE: CASE EVENT DATE: 2020
